FAERS Safety Report 6262543-8 (Version None)
Quarter: 2009Q3

REPORT INFORMATION
  Report Type: 
  Country: None (occurrence: None)
  Receive Date: 20090709
  Receipt Date: 20090628
  Transmission Date: 20100115
  Serious: Yes (Hospitalization)
  Sender: FDA-Public Use
  Company Number: JP-BAXTER-2009BH010300

PATIENT
  Age: 76 Year
  Sex: Male
  Weight: 60 kg

DRUGS (2)
  1. EXTRANEAL [Suspect]
     Indication: AZOTAEMIA
     Route: 033
     Dates: start: 20090604
  2. DIANEAL LOW CALCIUM W/ DEXTROSE 1.5% [Suspect]
     Indication: AZOTAEMIA
     Route: 033
     Dates: start: 20090604

REACTIONS (1)
  - HYDROCELE [None]
